FAERS Safety Report 9656847 (Version 1)
Quarter: 2013Q4

REPORT INFORMATION
  Report Type: Spontaneous
  Country: US (occurrence: US)
  Receive Date: 20131030
  Receipt Date: 20131030
  Transmission Date: 20140711
  Serious: Yes (Other)
  Sender: FDA-Public Use
  Company Number: US-PFIZER INC-2013306289

PATIENT
  Sex: Female

DRUGS (2)
  1. VIAGRA [Suspect]
     Indication: PULMONARY FIBROSIS
     Dosage: UNK
  2. VIAGRA [Suspect]
     Indication: PULMONARY HYPERTENSION

REACTIONS (2)
  - Diabetes mellitus [Unknown]
  - Off label use [Unknown]
